FAERS Safety Report 5642369-6 (Version None)
Quarter: 2008Q1

REPORT INFORMATION
  Report Type: 
  Country: None (occurrence: None)
  Receive Date: 20080227
  Receipt Date: 20080227
  Transmission Date: 20080703
  Serious: Yes (Hospitalization)
  Sender: FDA-Public Use
  Company Number: None

PATIENT
  Sex: Male
  Weight: 63.9572 kg

DRUGS (17)
  1. COUMADIN [Suspect]
     Indication: ATRIAL FIBRILLATION
     Dosage: QD ON THURS,FRI,SAT PRIOR TO ADMISSION
  2. COUMADIN [Suspect]
     Indication: ATRIAL FIBRILLATION
     Dosage: QD ON SUN,MON,TUES,WED PRIOR TO ADMISSION
  3. ASPIRIN [Suspect]
  4. PLAVIX [Suspect]
  5. METAMUCIL [Concomitant]
  6. MIRTAZAPINE [Concomitant]
  7. TOPROL-XL [Concomitant]
  8. MOM [Concomitant]
  9. TYLENOL (CAPLET) [Concomitant]
  10. ASPIRIN [Concomitant]
  11. CYMBALTA [Concomitant]
  12. COLACE [Concomitant]
  13. VICODIN [Concomitant]
  14. LACTULOSE [Concomitant]
  15. LISINOPRIL [Concomitant]
  16. LOVASTATIN [Concomitant]
  17. SODIUM PHOSPHATES [Concomitant]

REACTIONS (4)
  - COAGULOPATHY [None]
  - HAEMATURIA [None]
  - HYPOTENSION [None]
  - UPPER GASTROINTESTINAL HAEMORRHAGE [None]
